FAERS Safety Report 18851108 (Version 7)
Quarter: 2022Q1

REPORT INFORMATION
  Report Type: Report from Study
  Country: US (occurrence: US)
  Receive Date: 20210205
  Receipt Date: 20220127
  Transmission Date: 20220423
  Serious: Yes (Other)
  Sender: FDA-Public Use
  Company Number: NVSC2021US017859

PATIENT
  Sex: Female

DRUGS (1)
  1. XIIDRA [Suspect]
     Active Substance: LIFITEGRAST
     Indication: Product used for unknown indication
     Dosage: UNK
     Route: 065

REACTIONS (7)
  - Cerebrovascular accident [Unknown]
  - Visual impairment [Unknown]
  - Malaise [Unknown]
  - Dry eye [Unknown]
  - Vision blurred [Unknown]
  - Nervousness [Unknown]
  - Lacrimation increased [Unknown]
